FAERS Safety Report 5656925-2 (Version None)
Quarter: 2008Q1

REPORT INFORMATION
  Report Type: 
  Country: None (occurrence: None)
  Receive Date: 20080307
  Receipt Date: 20080307
  Transmission Date: 20080703
  Serious: Yes (Hospitalization)
  Sender: FDA-Public Use
  Company Number: None

PATIENT
  Sex: Female
  Weight: 64.1 kg

DRUGS (2)
  1. CARBOPLATIN [Suspect]
     Dosage: 395 MG
     Dates: end: 20080218
  2. TAXOL [Suspect]
     Dosage: 292 MG
     Dates: end: 20080218

REACTIONS (9)
  - CLOSTRIDIAL INFECTION [None]
  - DEHYDRATION [None]
  - DIARRHOEA [None]
  - GENERAL PHYSICAL HEALTH DETERIORATION [None]
  - HYPOTENSION [None]
  - HYPOXIA [None]
  - NAUSEA [None]
  - SEPTIC SHOCK [None]
  - VOMITING [None]
